FAERS Safety Report 12813738 (Version 1)
Quarter: 2016Q4

REPORT INFORMATION
  Report Type: Spontaneous
  Country: US (occurrence: US)
  Receive Date: 20161005
  Receipt Date: 20161005
  Transmission Date: 20170207
  Serious: No
  Sender: FDA-Public Use
  Company Number: US-AMGEN-USASP2016029304

PATIENT
  Sex: Female

DRUGS (1)
  1. PROLIA [Suspect]
     Active Substance: DENOSUMAB
     Indication: PRODUCT USED FOR UNKNOWN INDICATION
     Dosage: UNK
     Route: 065
     Dates: start: 201506

REACTIONS (6)
  - Feeling abnormal [Unknown]
  - Neck pain [Unknown]
  - Insomnia [Unknown]
  - Pain in extremity [Unknown]
  - Mobility decreased [Unknown]
  - Arthralgia [Unknown]
